APPROVED DRUG PRODUCT: VISTARIL
Active Ingredient: HYDROXYZINE PAMOATE
Strength: EQ 50MG HYDROCHLORIDE
Dosage Form/Route: CAPSULE;ORAL
Application: N011459 | Product #004 | TE Code: AB
Applicant: PFIZER LABORATORIES DIV PFIZER INC
Approved: Approved Prior to Jan 1, 1982 | RLD: Yes | RS: No | Type: RX